FAERS Safety Report 8974113 (Version 1)
Quarter: 2012Q4

REPORT INFORMATION
  Report Type: Spontaneous
  Country: GB (occurrence: None)
  Receive Date: 20121212
  Receipt Date: 20121212
  Transmission Date: 20130627
  Serious: Yes (Hospitalization)
  Sender: FDA-Public Use
  Company Number: 2012ST000157

PATIENT
  Age: 57 Year
  Sex: Male

DRUGS (1)
  1. OMEPRAZOLE (OMEPRAZOLE) [Suspect]
     Indication: BARRETT^S OESOPHAGUS

REACTIONS (5)
  - Hypocalcaemia [None]
  - Hypomagnesaemia [None]
  - Paraesthesia [None]
  - Muscle spasms [None]
  - Hypoparathyroidism [None]
